FAERS Safety Report 5273271-X (Version None)
Quarter: 2007Q1

REPORT INFORMATION
  Report Type: 
  Country: None (occurrence: None)
  Receive Date: 20070319
  Receipt Date: 20070307
  Transmission Date: 20070707
  Serious: Yes (Other)
  Sender: FDA-Public Use
  Company Number: 2007SP004326

PATIENT
  Sex: Female

DRUGS (1)
  1. DESLORATADINE [Suspect]
     Indication: FOOD INTOLERANCE
     Dates: start: 20060301

REACTIONS (2)
  - BLOOD PRESSURE INCREASED [None]
  - TINNITUS [None]
